FAERS Safety Report 18229173 (Version 5)
Quarter: 2020Q4

REPORT INFORMATION
  Report Type: Spontaneous
  Country: US (occurrence: US)
  Receive Date: 20200903
  Receipt Date: 20201204
  Transmission Date: 20210113
  Serious: No
  Sender: FDA-Public Use
  Company Number: US-PFIZER INC-2020340814

PATIENT
  Age: 78 Year
  Sex: Female

DRUGS (3)
  1. LETROZOLE. [Suspect]
     Active Substance: LETROZOLE
     Dosage: UNK
  2. IBRANCE [Suspect]
     Active Substance: PALBOCICLIB
     Dosage: 100 MG
  3. IBRANCE [Suspect]
     Active Substance: PALBOCICLIB
     Dosage: 75 MG

REACTIONS (13)
  - Decreased appetite [Unknown]
  - Neoplasm progression [Unknown]
  - Fatigue [Not Recovered/Not Resolved]
  - Renal disorder [Recovering/Resolving]
  - Crying [Recovering/Resolving]
  - Peripheral swelling [Unknown]
  - Stress [Unknown]
  - Feeling abnormal [Unknown]
  - White blood cell count decreased [Recovered/Resolved]
  - Joint swelling [Unknown]
  - Rash [Unknown]
  - Confusional state [Unknown]
  - Arthropathy [Unknown]
